FAERS Safety Report 10366472 (Version 4)
Quarter: 2015Q2

REPORT INFORMATION
  Report Type: Spontaneous
  Country: JP (occurrence: None)
  Receive Date: 20140804
  Receipt Date: 20150413
  Transmission Date: 20150821
  Serious: Yes (Other)
  Sender: FDA-Public Use
  Company Number: 2014JP010559

PATIENT
  Age: 68 Year
  Sex: Male
  Weight: 53 kg

DRUGS (12)
  1. DEXART (DEXAMETHASONE SODIUM PHOSPHATE) [Suspect]
     Active Substance: DEXAMETHASONE SODIUM PHOSPHATE
     Indication: PROPHYLAXIS OF NAUSEA AND VOMITING
     Route: 042
     Dates: start: 20140709, end: 20140709
  2. NETUPITANT (NETUPITANT) [Suspect]
     Active Substance: NETUPITANT
     Indication: PROPHYLAXIS OF NAUSEA AND VOMITING
     Dosage: 30 MG, SINGLE, ORAL
     Route: 048
     Dates: start: 20140709, end: 20140709
  3. TAXOTERE [Suspect]
     Active Substance: DOCETAXEL
     Indication: NON-SMALL CELL LUNG CANCER
     Route: 041
     Dates: start: 20140709
  4. PHYSIO (CALCIUM GLUCONATE, GLUCOSE, MAGNESIUM CHLORIDE ANHYDROUS, PATASSIUM CHLORIDE, POTASSIUM PHOSPHATE MONOBASIC, SODIUM ACETATE, SODIUM CHLORIDE) [Concomitant]
  5. ALOXI [Suspect]
     Active Substance: PALONOSETRON HYDROCHLORIDE
     Indication: PROPHYLAXIS OF NAUSEA AND VOMITING
     Dosage: 0.75 MG, SINGLE, INTRAVENOUS
     Route: 042
     Dates: start: 20140709, end: 20140709
  6. DECADRON [Suspect]
     Active Substance: DEXAMETHASONE
     Indication: PROPHYLAXIS OF NAUSEA AND VOMITING
     Route: 048
     Dates: start: 20140710, end: 20140712
  7. BUSCOPAN (HYOSCINE BUTYLBROMIDE) (HYOSCINE BUTYLBROMIDE) [Concomitant]
     Active Substance: BUTYLSCOPOLAMINE
  8. CISPLATIN (CISPLATIN) [Suspect]
     Active Substance: CISPLATIN
     Indication: NON-SMALL CELL LUNG CANCER
     Route: 041
     Dates: start: 20140709
  9. GASTER D (FAMOTIDINE) [Concomitant]
  10. LOXOPROFEN SODIUM [Concomitant]
     Active Substance: LOXOPROFEN SODIUM
  11. AMLODIN (AMLODIPINE BESILATE) [Concomitant]
  12. LACTEC G (CALCIUM CHLORIDE ANHYDROUS, POTASSIUM CHLORIDE, SODIUM CHLORIDE, SODIUM LACTATE, SORBITOL) [Concomitant]

REACTIONS (4)
  - Abdominal pain upper [None]
  - Ventricular extrasystoles [None]
  - Arthralgia [None]
  - Iatrogenic injury [None]

NARRATIVE: CASE EVENT DATE: 20140718
